FAERS Safety Report 8515658-5 (Version None)
Quarter: 2012Q3

REPORT INFORMATION
  Report Type: 
  Country: None (occurrence: None)
  Receive Date: 20120717
  Receipt Date: 20120711
  Transmission Date: 20120928
  Serious: Yes (Other)
  Sender: FDA-Public Use
  Company Number: PHEH2012US013807

PATIENT
  Sex: Male

DRUGS (4)
  1. EXELON [Suspect]
     Dosage: 9.5 MG, 1 X DAILY
     Route: 062
  2. ASPIRIN [Concomitant]
     Dosage: 81 MG, QD
  3. LESCOL XL [Concomitant]
     Dosage: 80 MG, QD
  4. SEROQUEL [Concomitant]
     Dosage: 25 MG, QD

REACTIONS (2)
  - BONE NEOPLASM MALIGNANT [None]
  - MACULAR DEGENERATION [None]
